FAERS Safety Report 7725120-5 (Version None)
Quarter: 2011Q3

REPORT INFORMATION
  Report Type: 
  Country: None (occurrence: None)
  Receive Date: 20110901
  Receipt Date: 20110831
  Transmission Date: 20111222
  Serious: Yes (Hospitalization)
  Sender: FDA-Public Use
  Company Number: CHPA2011US10633

PATIENT
  Age: 66 Year
  Sex: Female

DRUGS (2)
  1. TRANSDERM SCOP [Suspect]
     Indication: MOTION SICKNESS
     Dosage: 1 DF, Q72H
     Route: 062
     Dates: start: 20110701, end: 20110701
  2. TRANSDERM SCOP [Suspect]
     Dosage: 1 DF FOR 6 DAYS
     Route: 062
     Dates: start: 20110701, end: 20110701

REACTIONS (5)
  - MALAISE [None]
  - VOMITING [None]
  - DIARRHOEA [None]
  - NAUSEA [None]
  - VERTIGO [None]
